FAERS Safety Report 10051048 (Version 1)
Quarter: 2014Q2

REPORT INFORMATION
  Report Type: Spontaneous
  Country: US (occurrence: US)
  Receive Date: 20140401
  Receipt Date: 20140401
  Transmission Date: 20141212
  Serious: No
  Sender: FDA-Public Use
  Company Number: US-TARO-2013P1005260

PATIENT
  Age: 75 Year
  Sex: Female
  Weight: 45.36 kg

DRUGS (5)
  1. MICONAZOLE NITRATE VAGINAL CREAM 4% 3 DAY CREAM [Suspect]
     Indication: FUNGAL INFECTION
     Route: 067
     Dates: start: 20130419, end: 20130422
  2. SIMVASTATIN [Concomitant]
  3. LISINOPRIL [Concomitant]
  4. PLAVIX [Concomitant]
  5. LEVOTHYROXINE [Concomitant]

REACTIONS (1)
  - Dysgeusia [Recovered/Resolved]
